FAERS Safety Report 5792223-4 (Version None)
Quarter: 2008Q2

REPORT INFORMATION
  Report Type: 
  Country: None (occurrence: None)
  Receive Date: 20080626
  Receipt Date: 20080324
  Transmission Date: 20081010
  Serious: No
  Sender: FDA-Public Use
  Company Number: US-ASTRAZENECA-2008UW05330

PATIENT
  Age: 6 Year
  Sex: Male
  Weight: 34.1 kg

DRUGS (4)
  1. PULMICORT FLEXHALER [Suspect]
     Indication: RESPIRATORY TRACT INFECTION
     Route: 055
  2. PULMICORT FLEXHALER [Suspect]
     Indication: ASTHMA
     Route: 055
  3. ALBUTEROL [Concomitant]
     Dosage: 2 PUFFS Q4H
  4. NASONEX [Concomitant]
     Dosage: 1 PUFF

REACTIONS (1)
  - DRUG INEFFECTIVE FOR UNAPPROVED INDICATION [None]
